FAERS Safety Report 11281754 (Version 4)
Quarter: 2016Q3

REPORT INFORMATION
  Report Type: Report from Study
  Country: US (occurrence: US)
  Receive Date: 20150717
  Receipt Date: 20160706
  Transmission Date: 20161109
  Serious: Yes (Death, Hospitalization)
  Sender: FDA-Public Use
  Company Number: US-ACTELION-A-NJ2015-120898

PATIENT
  Age: 61 Year
  Sex: Female

DRUGS (4)
  1. OPSUMIT [Suspect]
     Active Substance: MACITENTAN
     Indication: PULMONARY HYPERTENSION
     Dosage: 10 MG, UNK
     Route: 048
     Dates: start: 20150320, end: 20150407
  2. VELETRI [Suspect]
     Active Substance: EPOPROSTENOL
     Indication: PULMONARY HYPERTENSION
     Dosage: 29 NG/KG, PER MIN
     Route: 042
     Dates: start: 20141217
  3. FLOLAN [Concomitant]
     Active Substance: EPOPROSTENOL SODIUM
  4. COUMADIN [Concomitant]
     Active Substance: WARFARIN SODIUM

REACTIONS (7)
  - Gastrointestinal haemorrhage [Unknown]
  - Respiratory failure [Unknown]
  - Alanine aminotransferase increased [Unknown]
  - Scleroderma [Unknown]
  - Pulmonary arterial hypertension [Unknown]
  - Aspartate aminotransferase increased [Unknown]
  - Death [Fatal]

NARRATIVE: CASE EVENT DATE: 20150305
